FAERS Safety Report 18493601 (Version 2)
Quarter: 2021Q1

REPORT INFORMATION
  Report Type: Spontaneous
  Country: US (occurrence: US)
  Receive Date: 20201111
  Receipt Date: 20210323
  Transmission Date: 20210419
  Serious: No
  Sender: FDA-Public Use
  Company Number: US-TAKEDA-2020TUS045024

PATIENT
  Sex: Female
  Weight: 93.88 kg

DRUGS (27)
  1. CUVITRU [Suspect]
     Active Substance: HUMAN IMMUNOGLOBULIN G
     Dosage: 18 GRAM,1/WEEK
     Route: 058
     Dates: start: 20181008
  2. COMPAZINE [PROCHLORPERAZINE EDISYLATE] [Concomitant]
     Active Substance: PROCHLORPERAZINE EDISYLATE
     Dosage: UNK
  3. CALCIUM CARBONATE. [Concomitant]
     Active Substance: CALCIUM CARBONATE
     Dosage: UNK
  4. MAGNESIUM [Concomitant]
     Active Substance: MAGNESIUM
     Dosage: UNK
  5. LIDOCAINE;PRILOCAINE [Concomitant]
     Dosage: UNK
  6. EPINEPHRINE. [Concomitant]
     Active Substance: EPINEPHRINE
     Dosage: UNK
  7. CLOBEX [CLOBETASOL PROPIONATE] [Concomitant]
     Dosage: UNK
  8. AZITHROMYCIN ANHYDROUS. [Concomitant]
     Active Substance: AZITHROMYCIN ANHYDROUS
     Dosage: UNK
  9. GABAPENTIN. [Concomitant]
     Active Substance: GABAPENTIN
     Dosage: UNK
  10. ACETAMINOPHEN. [Concomitant]
     Active Substance: ACETAMINOPHEN
     Dosage: UNK
  11. PROMETHAZINE DM [Concomitant]
     Active Substance: DEXTROMETHORPHAN HYDROBROMIDE\PROMETHAZINE HYDROCHLORIDE
     Dosage: UNK
  12. KETOROLAC TROMETAMINE [Concomitant]
     Active Substance: KETOROLAC TROMETHAMINE
     Dosage: UNK
  13. ESTRACE [Concomitant]
     Active Substance: ESTRADIOL
     Dosage: UNK
  14. CUVITRU [Suspect]
     Active Substance: HUMAN IMMUNOGLOBULIN G
     Indication: IMMUNODEFICIENCY COMMON VARIABLE
     Dosage: 18 GRAM, 1/WEEK
     Route: 058
     Dates: start: 20180912
  15. AUGMENTIN [Concomitant]
     Active Substance: AMOXICILLIN\CLAVULANATE POTASSIUM
     Dosage: UNK
  16. DEMEROL [Concomitant]
     Active Substance: MEPERIDINE HYDROCHLORIDE
     Dosage: UNK
  17. NASONEX [Concomitant]
     Active Substance: MOMETASONE FUROATE
     Dosage: UNK
  18. DIPHENHYDRAMINE. [Concomitant]
     Active Substance: DIPHENHYDRAMINE
     Dosage: UNK
  19. PANTOPRAZOLE [Concomitant]
     Active Substance: PANTOPRAZOLE
     Dosage: UNK
  20. ORPHENADRINE CITRATE. [Concomitant]
     Active Substance: ORPHENADRINE CITRATE
     Dosage: UNK
  21. FLUCONAZOLE. [Concomitant]
     Active Substance: FLUCONAZOLE
     Dosage: UNK
  22. BUTALBITAL, ACETAMINOPHEN, AND CAFFEINE [Concomitant]
     Active Substance: ACETAMINOPHEN\BUTALBITAL\CAFFEINE
     Dosage: UNK
  23. FLAGYL [METRONIDAZOLE BENZOATE] [Concomitant]
     Active Substance: METRONIDAZOLE BENZOATE
     Dosage: UNK
  24. ZOFRAN [Concomitant]
     Active Substance: ONDANSETRON HYDROCHLORIDE
     Dosage: UNK
  25. PRIMIDONE. [Concomitant]
     Active Substance: PRIMIDONE
     Dosage: UNK
  26. DIAZEPAM. [Concomitant]
     Active Substance: DIAZEPAM
     Dosage: UNK
  27. BENADRYL [Concomitant]
     Active Substance: DIPHENHYDRAMINE HYDROCHLORIDE
     Dosage: UNK

REACTIONS (4)
  - Weight fluctuation [Unknown]
  - Injection site extravasation [Unknown]
  - Headache [Unknown]
  - Sinusitis [Unknown]
